FAERS Safety Report 7590154-0 (Version None)
Quarter: 2011Q3

REPORT INFORMATION
  Report Type: 
  Country: None (occurrence: None)
  Receive Date: 20110705
  Receipt Date: 20110628
  Transmission Date: 20111222
  Serious: Yes (Other)
  Sender: FDA-Public Use
  Company Number: B0730858A

PATIENT
  Age: 40 Year

DRUGS (1)
  1. PAZOPANIB [Suspect]
     Indication: RENAL CANCER
     Route: 065

REACTIONS (1)
  - POSTERIOR REVERSIBLE ENCEPHALOPATHY SYNDROME [None]
